FAERS Safety Report 7415439-X (Version None)
Quarter: 2011Q2

REPORT INFORMATION
  Report Type: 
  Country: None (occurrence: None)
  Receive Date: 20110414
  Receipt Date: 20110411
  Transmission Date: 20111010
  Serious: Yes (Death, Hospitalization, Other)
  Sender: FDA-Public Use
  Company Number: JP-BRACCO-003721

PATIENT
  Sex: Male

DRUGS (14)
  1. ASPIRIN [Concomitant]
     Route: 048
     Dates: end: 20100207
  2. ATORVASTATIN [Concomitant]
  3. GLYCEROL 2.6% [Concomitant]
  4. IOPAMIDOL [Suspect]
     Indication: DIAGNOSTIC PROCEDURE
     Dates: start: 20100208, end: 20100208
  5. NICARDIPINE HYDROCHLORIDE [Concomitant]
  6. PLAVIX [Suspect]
     Dates: start: 20100209
  7. ASPIRIN [Concomitant]
     Route: 048
     Dates: start: 20100208, end: 20100208
  8. APIXABAN [Suspect]
     Indication: THROMBOSIS PROPHYLAXIS
     Route: 048
     Dates: start: 20100212, end: 20100510
  9. INSULIN [Concomitant]
  10. MAGNESIUM OXIDE [Concomitant]
  11. PERINDOPRIL ERBUMINE [Suspect]
     Dates: start: 20100212, end: 20100522
  12. PLAVIX [Suspect]
     Dates: start: 20100208, end: 20100208
  13. ASPIRIN [Concomitant]
     Route: 048
     Dates: start: 20100209
  14. H2 BLOCKER [Concomitant]
     Dates: start: 20100209

REACTIONS (7)
  - VIITH NERVE PARALYSIS [None]
  - DEPRESSED LEVEL OF CONSCIOUSNESS [None]
  - RENAL FAILURE [None]
  - HAEMATEMESIS [None]
  - HYPOVENTILATION [None]
  - VERTIGO [None]
  - BLOOD PRESSURE INCREASED [None]
